FAERS Safety Report 15130052 (Version 2)
Quarter: 2018Q4

REPORT INFORMATION
  Report Type: Spontaneous
  Country: US (occurrence: US)
  Receive Date: 20180711
  Receipt Date: 20181024
  Transmission Date: 20190204
  Serious: Yes (Other)
  Sender: FDA-Public Use
  Company Number: US-PFIZER INC-2018279848

PATIENT
  Age: 49 Year
  Sex: Female
  Weight: 77.98 kg

DRUGS (4)
  1. LYRICA [Suspect]
     Active Substance: PREGABALIN
     Dosage: 75 MG, 2X/DAY
     Route: 048
     Dates: start: 201807
  2. PREDNISONE. [Concomitant]
     Active Substance: PREDNISONE
     Dosage: 20 MG, 2X/DAY
  3. LYRICA [Suspect]
     Active Substance: PREGABALIN
     Indication: FIBROMYALGIA
     Dosage: 75 MG, 2X/DAY (ONE 75MG CAPSULE BY MOUTH TWICE DAILY/75MG CAPSULES BY MOUTH TWICE DAILY)
     Route: 048
  4. LYRICA [Suspect]
     Active Substance: PREGABALIN
     Indication: SYSTEMIC LUPUS ERYTHEMATOSUS
     Dosage: 75 MG, DAILY (SHE WAS ONLY TAKING ONE CAPSULE DAY)
     Dates: start: 201806

REACTIONS (6)
  - Disturbance in attention [Unknown]
  - Pain [Unknown]
  - Impetigo [Unknown]
  - Incorrect dose administered [Unknown]
  - Swelling [Recovering/Resolving]
  - Urinary incontinence [Not Recovered/Not Resolved]

NARRATIVE: CASE EVENT DATE: 201806
